FAERS Safety Report 12989296 (Version 4)
Quarter: 2017Q3

REPORT INFORMATION
  Report Type: Spontaneous
  Country: US (occurrence: US)
  Receive Date: 20161201
  Receipt Date: 20170814
  Transmission Date: 20171127
  Serious: Yes (Other)
  Sender: FDA-Public Use
  Company Number: US-CELGENEUS-USA-2016117112

PATIENT
  Age: 72 Year
  Sex: Male
  Weight: 99.88 kg

DRUGS (1)
  1. OTEZLA [Suspect]
     Active Substance: APREMILAST
     Indication: PSORIASIS
     Dosage: 60MG
     Route: 048
     Dates: start: 20160627, end: 20161115

REACTIONS (7)
  - Skin exfoliation [Unknown]
  - Skin hypertrophy [Unknown]
  - Blister [Unknown]
  - Psoriasis [Unknown]
  - Urticaria [Unknown]
  - Depression [Unknown]
  - Therapy non-responder [Unknown]

NARRATIVE: CASE EVENT DATE: 20161101
